FAERS Safety Report 11246928 (Version 1)
Quarter: 2015Q3

REPORT INFORMATION
  Report Type: Spontaneous
  Country: US (occurrence: None)
  Receive Date: 20150706
  Receipt Date: 20150706
  Transmission Date: 20151125
  Serious: No
  Sender: FDA-Public Use
  Company Number: None

PATIENT
  Age: 67 Year
  Sex: Male
  Weight: 75.3 kg

DRUGS (1)
  1. LOSARTAN 50MG VIVIMED/VIRTUS PHARMACEUTICALS [Suspect]
     Active Substance: LOSARTAN
     Indication: HYPERTENSION
     Dosage: 2 PILLS
     Route: 048
     Dates: start: 20150123, end: 20150201

REACTIONS (7)
  - Drug hypersensitivity [None]
  - Blood pressure increased [None]
  - Product substitution issue [None]
  - Product quality issue [None]
  - Therapy change [None]
  - Dyspnoea [None]
  - Headache [None]

NARRATIVE: CASE EVENT DATE: 20150201
